FAERS Safety Report 18584122 (Version 1)
Quarter: 2020Q4

REPORT INFORMATION
  Report Type: Spontaneous
  Country: ES (occurrence: ES)
  Receive Date: 20201207
  Receipt Date: 20201207
  Transmission Date: 20210114
  Serious: Yes (Other)
  Sender: FDA-Public Use
  Company Number: ES-AUROBINDO-AUR-APL-2020-059490

PATIENT
  Age: 37 Year
  Sex: Female

DRUGS (3)
  1. LEVETIRACETAM. [Concomitant]
     Active Substance: LEVETIRACETAM
     Indication: EPILEPSY
     Dosage: UNK
     Route: 065
     Dates: start: 2020
  2. DEPAKINE [Interacting]
     Active Substance: VALPROATE SODIUM
     Indication: EPILEPSY
     Dosage: UNK
     Route: 047
     Dates: start: 2020
  3. ERTAPENEM AUROVITAS 1 G POWDER FOR CONCENTRATE FOR SOLUTION FOR INFUSI [Suspect]
     Active Substance: ERTAPENEM
     Indication: INFECTION
     Dosage: UNK
     Route: 042
     Dates: start: 202011, end: 20201111

REACTIONS (2)
  - Labelled drug-drug interaction medication error [Recovered/Resolved]
  - Seizure [Recovered/Resolved]

NARRATIVE: CASE EVENT DATE: 20201111
